FAERS Safety Report 18261862 (Version 1)
Quarter: 2020Q3

REPORT INFORMATION
  Report Type: Spontaneous
  Country: US (occurrence: US)
  Receive Date: 20200911
  Receipt Date: 20200911
  Transmission Date: 20201103
  Serious: Yes (Hospitalization)
  Sender: FDA-Public Use
  Company Number: None

PATIENT
  Age: 62 Year
  Sex: Female

DRUGS (5)
  1. LAMOTRIGINE. [Concomitant]
     Active Substance: LAMOTRIGINE
  2. PROMACTA [Suspect]
     Active Substance: ELTROMBOPAG OLAMINE
     Indication: THROMBOCYTOPENIA
     Route: 048
     Dates: start: 202008
  3. ONDANSETRON [Concomitant]
     Active Substance: ONDANSETRON
  4. PREVYMIS [Suspect]
     Active Substance: LETERMOVIR
     Indication: CYTOMEGALOVIRUS INFECTION
     Route: 048
     Dates: start: 202005, end: 202008
  5. NITROFURANTN [Concomitant]
     Active Substance: NITROFURANTOIN

REACTIONS (3)
  - Fatigue [None]
  - Head injury [None]
  - Fall [None]

NARRATIVE: CASE EVENT DATE: 20200908
